FAERS Safety Report 26038535 (Version 1)
Quarter: 2025Q4

REPORT INFORMATION
  Report Type: Spontaneous
  Country: US (occurrence: US)
  Receive Date: 20251113
  Receipt Date: 20251113
  Transmission Date: 20260118
  Serious: No
  Sender: OPTINOSE INC
  Company Number: US-OPTINOSE US, INC.-2025OPT000096

PATIENT
  Age: 46 Year
  Sex: Female

DRUGS (1)
  1. XHANCE [Suspect]
     Active Substance: FLUTICASONE PROPIONATE
     Indication: Product used for unknown indication
     Dosage: 372 MICROGRAM 2 SPRAYS PER NOSTRIL, QD
     Route: 045
     Dates: start: 20250328

REACTIONS (2)
  - Dry mouth [Unknown]
  - Rhinalgia [Unknown]

NARRATIVE: CASE EVENT DATE: 20250328
